FAERS Safety Report 5065672-X (Version None)
Quarter: 2006Q3

REPORT INFORMATION
  Report Type: 
  Country: None (occurrence: None)
  Receive Date: 20060731
  Receipt Date: 20060724
  Transmission Date: 20061208
  Serious: Yes (Hospitalization)
  Sender: FDA-Public Use
  Company Number: US-ABBOTT-06P-163-0338586-00

PATIENT
  Sex: Female
  Weight: 80.812 kg

DRUGS (4)
  1. SYNTHROID [Suspect]
     Indication: HYPOTHYROIDISM
     Route: 048
     Dates: end: 20060712
  2. SYNTHROID [Suspect]
     Route: 048
     Dates: start: 20060713
  3. ATORVASTATIN CALCIUM [Concomitant]
     Indication: BLOOD PRESSURE INCREASED
     Route: 048
  4. FENOFIBRATE [Concomitant]
     Indication: BLOOD TRIGLYCERIDES INCREASED
     Route: 048

REACTIONS (2)
  - HYPERTENSION [None]
  - TRACHEOBRONCHITIS [None]
